FAERS Safety Report 9522942 (Version 1)
Quarter: 2013Q3

REPORT INFORMATION
  Report Type: Spontaneous
  Country: US (occurrence: US)
  Receive Date: 20130913
  Receipt Date: 20130913
  Transmission Date: 20140515
  Serious: Yes (Other)
  Sender: FDA-Public Use
  Company Number: US-TEVA-431317USA

PATIENT
  Age: 50 Year
  Sex: Female
  Weight: 71.28 kg

DRUGS (4)
  1. NUVIGIL [Suspect]
     Indication: HYPERSOMNIA
     Dosage: HALF TABLET (NOS)
     Route: 048
     Dates: start: 20130905, end: 20130906
  2. PLAQUENIL [Concomitant]
     Indication: RHEUMATOID ARTHRITIS
  3. METHOTREXATE [Concomitant]
     Indication: RHEUMATOID ARTHRITIS
  4. LEUKOVORIN [Concomitant]
     Indication: FOLATE DEFICIENCY

REACTIONS (2)
  - Rash [Not Recovered/Not Resolved]
  - Pruritus [Not Recovered/Not Resolved]
